FAERS Safety Report 8453982-5 (Version None)
Quarter: 2012Q2

REPORT INFORMATION
  Report Type: 
  Country: None (occurrence: None)
  Receive Date: 20120620
  Receipt Date: 20120615
  Transmission Date: 20120825
  Serious: Yes (Hospitalization)
  Sender: FDA-Public Use
  Company Number: NL-AMGEN-NLDCT2012036241

PATIENT
  Age: 62 Year
  Sex: Female
  Weight: 73.6 kg

DRUGS (15)
  1. VITAMIN D [Concomitant]
     Dosage: UNK IU, UNK
     Route: 048
     Dates: start: 20120410
  2. DOCETAXEL [Concomitant]
     Dosage: 180 MG, UNK
     Route: 042
     Dates: start: 20120524
  3. MOVICOLON [Concomitant]
     Dosage: UNK
     Route: 048
     Dates: start: 20120528
  4. FLUOROURACIL [Concomitant]
     Dosage: 900 MG, UNK
     Route: 042
     Dates: start: 20120322, end: 20120503
  5. CALCIUM [Concomitant]
     Dosage: 500 MG, UNK
     Route: 048
     Dates: start: 20120410
  6. PANTOPRAZOLE [Concomitant]
     Dosage: 40 MG, UNK
     Route: 048
     Dates: start: 20120515
  7. EPIRUBICIN [Concomitant]
     Dosage: 180 MG, UNK
     Route: 042
     Dates: start: 20120322, end: 20120503
  8. NEULASTA [Suspect]
     Dosage: 6 MG, UNK
     Route: 058
     Dates: start: 20120525
  9. BLINDED DENOSUMAB [Suspect]
     Indication: BREAST CANCER
     Dosage: 1.7 ML, UNK
     Route: 058
     Dates: start: 20120410
  10. PLACEBO [Suspect]
     Indication: BREAST CANCER
     Dosage: 1.7 ML, UNK
     Route: 058
     Dates: start: 20120410
  11. CYCLOPHOSPHAMIDE [Concomitant]
     Dosage: 900 MG, UNK
     Route: 042
     Dates: start: 20120322, end: 20120503
  12. DEXAMETHASONE [Concomitant]
     Dosage: 8 MG, UNK
     Route: 048
     Dates: start: 20120523
  13. ORAMORPH SR [Concomitant]
     Route: 048
     Dates: start: 20120528, end: 20120605
  14. GRANISETRON [Concomitant]
     Dosage: 2 MG, UNK
     Route: 048
     Dates: start: 20120322
  15. MORPHINE [Concomitant]
     Route: 058
     Dates: start: 20120528, end: 20120528

REACTIONS (1)
  - TOXIC SKIN ERUPTION [None]
